FAERS Safety Report 26216188 (Version 1)
Quarter: 2025Q4

REPORT INFORMATION
  Report Type: Spontaneous
  Country: EU (occurrence: EU)
  Receive Date: 20251231
  Receipt Date: 20251231
  Transmission Date: 20260118
  Serious: Yes (Death, Hospitalization)
  Sender: ROCHE
  Company Number: None

PATIENT
  Sex: Female

DRUGS (7)
  1. TECENTRIQ [Suspect]
     Active Substance: ATEZOLIZUMAB
     Indication: Hepatic cancer
  2. TECENTRIQ [Suspect]
     Active Substance: ATEZOLIZUMAB
     Indication: Hepatic neoplasm
  3. Esomeprazol Krka 20 MG S?RU?OLIN HYLKI, H?R? [Concomitant]
     Dosage: 1 X 1
  4. Allopurinol Alvogen 100 MG T?FLUR [Concomitant]
     Dosage: 1 X 1
  5. Contalgin 5 mg for?at?flur [Concomitant]
     Dosage: 1 IN THE MORNING - 1 IN THE EVENING
  6. Aprepitant Medical Valley H?RDE KAPSLER [Concomitant]
  7. Atenolol Viatris 50 mg filmuh??a?ar t?flur [Concomitant]
     Dosage: 1 X 1

REACTIONS (3)
  - Jaundice [Fatal]
  - Hepatic failure [Fatal]
  - Drug-induced liver injury [Fatal]

NARRATIVE: CASE EVENT DATE: 20251105
